FAERS Safety Report 7646026-6 (Version None)
Quarter: 2011Q3

REPORT INFORMATION
  Report Type: 
  Country: None (occurrence: None)
  Receive Date: 20110801
  Receipt Date: 20110722
  Transmission Date: 20111222
  Serious: Yes (Hospitalization)
  Sender: FDA-Public Use
  Company Number: US-BRISTOL-MYERS SQUIBB COMPANY-15913643

PATIENT
  Sex: Male

DRUGS (5)
  1. SPRYCEL [Suspect]
     Indication: ACUTE LYMPHOCYTIC LEUKAEMIA
  2. ADRIAMYCIN PFS [Suspect]
  3. DEXAMETHASONE [Suspect]
  4. CYCLOPHOSPHAMIDE [Suspect]
  5. VINCRISTINE [Suspect]

REACTIONS (1)
  - PLEURAL EFFUSION [None]
